FAERS Safety Report 9053339 (Version 3)
Quarter: 2013Q2

REPORT INFORMATION
  Report Type: Spontaneous
  Country: JP (occurrence: JP)
  Receive Date: 20130207
  Receipt Date: 20130430
  Transmission Date: 20140414
  Serious: Yes (Other)
  Sender: FDA-Public Use
  Company Number: JP-ROCHE-1188845

PATIENT
  Age: 67 Year
  Sex: Female
  Weight: 53 kg

DRUGS (6)
  1. AVASTIN [Suspect]
     Indication: BREAST CANCER METASTATIC
     Route: 041
     Dates: start: 20121107, end: 20121207
  2. PACLITAXEL [Suspect]
     Indication: BREAST CANCER METASTATIC
     Route: 041
     Dates: start: 20121107, end: 20121207
  3. VENA [Concomitant]
     Indication: ALLERGY PROPHYLAXIS
     Route: 048
     Dates: start: 20121107, end: 20121207
  4. DEXART [Concomitant]
     Indication: ALLERGY PROPHYLAXIS
     Route: 041
     Dates: start: 20121107, end: 20121207
  5. ZANTAC [Concomitant]
     Indication: ALLERGY PROPHYLAXIS
     Route: 041
     Dates: start: 20121107, end: 20121207
  6. KYTRIL [Concomitant]
     Indication: PROPHYLAXIS OF NAUSEA AND VOMITING
     Route: 041
     Dates: start: 20121107, end: 20121207

REACTIONS (1)
  - Pneumonitis [Recovered/Resolved]
